FAERS Safety Report 5148200-X (Version None)
Quarter: 2006Q4

REPORT INFORMATION
  Report Type: 
  Country: None (occurrence: None)
  Receive Date: 20061106
  Receipt Date: 20061024
  Transmission Date: 20070319
  Serious: Yes (Hospitalization)
  Sender: FDA-Public Use
  Company Number: 2006BH013221

PATIENT
  Age: 30 Year
  Sex: Female

DRUGS (6)
  1. EXTRANEAL [Suspect]
     Indication: DIABETES MELLITUS
     Dosage: IP
     Route: 033
     Dates: start: 20060819, end: 20060821
  2. PHYSIONEAL 35 (PHYSIONEAL 35 GLUCOSE AND ELECTROLYTE SOLUTION) [Suspect]
     Indication: DIABETES MELLITUS
     Dosage: 2 L;2X A DAY:IP
     Route: 033
     Dates: start: 20060819
  3. INSULIN [Concomitant]
  4. ENALAPRIL MALEATE [Concomitant]
  5. EPOETIN NOS [Concomitant]
  6. SIMVASTATIN [Concomitant]

REACTIONS (4)
  - DERMATITIS EXFOLIATIVE [None]
  - IMPETIGO [None]
  - PRURITUS [None]
  - TOXIC SKIN ERUPTION [None]
